FAERS Safety Report 16233932 (Version 1)
Quarter: 2019Q2

REPORT INFORMATION
  Report Type: Spontaneous
  Country: US (occurrence: US)
  Receive Date: 20190423
  Receipt Date: 20190423
  Transmission Date: 20190711
  Serious: Yes (Hospitalization)
  Sender: FDA-Public Use
  Company Number: None

PATIENT
  Age: 73 Year
  Sex: Male

DRUGS (16)
  1. FOLIC +B12 TAB [Concomitant]
  2. METOPROL TAR TAB 50MG [Concomitant]
  3. LISINOPRIL TAB 20MG [Concomitant]
     Active Substance: LISINOPRIL
  4. NOVOLOG MIX INJ FLEXPEN [Concomitant]
  5. JANUMET XR TAB 100-1000 [Concomitant]
  6. LEVOTHYROXIN TAB 125MCG [Concomitant]
  7. VITAMIN D CAP 50000UNT [Concomitant]
  8. AMITRIPTYLIN TAB 25MG [Concomitant]
  9. BICALUTAMIDE TAB 50MG [Concomitant]
     Active Substance: BICALUTAMIDE
  10. SIMVASTATIN TAB 20MG [Concomitant]
  11. ELIQUIS TAB 5MG [Concomitant]
  12. OXYCOD/APAP TAB 7.5-325 [Concomitant]
  13. LUPRON DEPOT [Suspect]
     Active Substance: LEUPROLIDE ACETATE
     Indication: PROSTATE CANCER
     Dosage: ?          OTHER FREQUENCY:EVERY 6 MONTHS;?
     Route: 030
     Dates: start: 20161011
  14. AMLODIPINE TAB 5MG [Concomitant]
  15. FENOFIBRATE TAB 145MG [Concomitant]
  16. FLOMAX [Concomitant]
     Active Substance: TAMSULOSIN HYDROCHLORIDE

REACTIONS (1)
  - Pneumonia [None]

NARRATIVE: CASE EVENT DATE: 20190407
